FAERS Safety Report 21776253 (Version 4)
Quarter: 2023Q2

REPORT INFORMATION
  Report Type: Spontaneous
  Country: US (occurrence: US)
  Receive Date: 20221226
  Receipt Date: 20230510
  Transmission Date: 20230722
  Serious: Yes (Hospitalization)
  Sender: FDA-Public Use
  Company Number: US-JNJFOC-20221251782

PATIENT
  Age: 74 Year
  Sex: Male

DRUGS (35)
  1. ZYTIGA [Suspect]
     Active Substance: ABIRATERONE ACETATE
     Indication: Product used for unknown indication
     Route: 048
     Dates: start: 20220130
  2. ZYTIGA [Suspect]
     Active Substance: ABIRATERONE ACETATE
     Route: 048
     Dates: start: 20220201
  3. DIPYRIDAMOLE [Concomitant]
     Active Substance: DIPYRIDAMOLE
     Indication: Vasodilatation
  4. FIRMAGON [Concomitant]
     Active Substance: DEGARELIX ACETATE
     Indication: Neoplasm malignant
     Dates: start: 20220901
  5. NALTREXONE [Concomitant]
     Active Substance: NALTREXONE
     Indication: Neoplasm prostate
  6. GABAPENTIN [Concomitant]
     Active Substance: GABAPENTIN
     Indication: Neuralgia
     Dosage: TAKEN AT NIGHT AT BEDTIME
     Dates: start: 20220911
  7. POTASSIUM CITRATE [Concomitant]
     Active Substance: POTASSIUM CITRATE
     Indication: Nephrolithiasis
  8. TRENTAL [Concomitant]
     Active Substance: PENTOXIFYLLINE
     Indication: Cardiovascular disorder
  9. PREDNISONE [Concomitant]
     Active Substance: PREDNISONE
     Dosage: TAKE ONE (1) BY MOUTH AT NIGHT WITH ZYTIGA
     Dates: start: 20220201
  10. LANTUS SOLOSTAR [Concomitant]
     Active Substance: INSULIN GLARGINE
     Indication: Type 2 diabetes mellitus
     Dates: start: 20220715
  11. HUMALOG [Concomitant]
     Active Substance: INSULIN LISPRO
     Indication: Type 2 diabetes mellitus
     Dates: start: 20220808
  12. METFORMIN [Concomitant]
     Active Substance: METFORMIN HYDROCHLORIDE
     Indication: Prostate cancer
  13. METFORMIN [Concomitant]
     Active Substance: METFORMIN HYDROCHLORIDE
     Indication: Type 2 diabetes mellitus
  14. VITAMIN B COMPLEX [CYANOCOBALAMIN] [Concomitant]
     Indication: Vitamin supplementation
  15. VITAMIN C [Concomitant]
     Active Substance: ASCORBIC ACID
     Indication: Vitamin supplementation
     Dosage: 2 CAPS
  16. VITAMIN D3 [Concomitant]
     Active Substance: CHOLECALCIFEROL
     Indication: Vitamin supplementation
     Dosage: 2 CAPS TWICE A DAY
  17. MENATETRENONE [Concomitant]
     Active Substance: MENATETRENONE
     Indication: Nutritional supplementation
     Dosage: 3 CAPSULE
  18. ZINC [Concomitant]
     Active Substance: ZINC
     Indication: Nutritional supplementation
     Dosage: 2 CAPS 2 X A DAY WITH FOOD
  19. ARTEMIS PLUS [Concomitant]
     Indication: Antiviral prophylaxis
  20. ARTEMIS PLUS [Concomitant]
     Indication: Antiinflammatory therapy
  21. ASHWAGANDHA [WITHANIA SOMNIFERA ROOT] [Concomitant]
     Dosage: TINCTURE MIX 2 TSP TWICE DAILY
  22. ASTRAGALUS [ASTRAGALUS PROPINQUUS] [Concomitant]
     Dosage: TINCTURE MIX 2 TSP TWICE DAILY
  23. ASIAN GINSENG [Concomitant]
     Active Substance: ASIAN GINSENG
     Dosage: TINCTURE MIX 2 TSP TWICE DAILY
  24. PEARLS IC [Concomitant]
     Indication: Prostate cancer
  25. FLAXSEED [Concomitant]
     Active Substance: FLAX SEED
     Dosage: 3 CAPSULES DAILY
  26. FIBER [Concomitant]
     Dosage: AS NEEDED PER DAY
  27. FISH OIL [Concomitant]
     Active Substance: FISH OIL
     Indication: Antiinflammatory therapy
  28. FISH OIL [Concomitant]
     Active Substance: FISH OIL
     Indication: Osteoporosis prophylaxis
  29. GENISTEIN [Concomitant]
     Active Substance: GENISTEIN
     Indication: Prophylaxis
     Dosage: 200-400
  30. GENISTEIN [Concomitant]
     Active Substance: GENISTEIN
     Indication: Osteoporosis
  31. GLUCOTRUST [Concomitant]
     Indication: Type 2 diabetes mellitus
  32. DIETARY SUPPLEMENT [Concomitant]
     Active Substance: DIETARY SUPPLEMENT
     Dosage: 4 CAPS DAILEY [2 AM 2 PM]
  33. MELATONIN [Concomitant]
     Active Substance: MELATONIN
     Indication: Neoplasm
     Dosage: TAKE AT NIGHT (MAY HELP REDUCE TUMOR SIZE) ?INCRESS TO 20MG AT BEDTIME
  34. OSTERONE [Concomitant]
  35. PROBIOTICS NOS [Concomitant]
     Active Substance: PROBIOTICS NOS

REACTIONS (1)
  - Lung operation [Recovered/Resolved]

NARRATIVE: CASE EVENT DATE: 20221116
